FAERS Safety Report 4747312-X (Version None)
Quarter: 2005Q3

REPORT INFORMATION
  Report Type: 
  Country: None (occurrence: None)
  Receive Date: 20050815
  Receipt Date: 20050512
  Transmission Date: 20060218
  Serious: No
  Sender: FDA-Public Use
  Company Number: USA050597951

PATIENT
  Age: 61 Year
  Sex: Male

DRUGS (4)
  1. CIALIS [Suspect]
     Indication: ERECTILE DYSFUNCTION
     Dosage: 20 MG
  2. LISINOPRIL [Concomitant]
  3. ALLEGRA [Concomitant]
  4. NASONEX [Concomitant]

REACTIONS (4)
  - DRUG INTERACTION [None]
  - FLUSHING [None]
  - HEADACHE [None]
  - THERAPEUTIC RESPONSE DECREASED [None]
